FAERS Safety Report 5399606-5 (Version None)
Quarter: 2007Q3

REPORT INFORMATION
  Report Type: 
  Country: None (occurrence: None)
  Receive Date: 20070727
  Receipt Date: 20070716
  Transmission Date: 20080115
  Serious: Yes (Hospitalization)
  Sender: FDA-Public Use
  Company Number: IT-PFIZER INC-2007032593

PATIENT
  Sex: Male
  Weight: 79 kg

DRUGS (2)
  1. SU-011,248 [Suspect]
     Indication: METASTATIC RENAL CELL CARCINOMA
     Route: 048
     Dates: start: 20060623, end: 20061022
  2. SU-011,248 [Suspect]
     Route: 048

REACTIONS (3)
  - LUNG DISORDER [None]
  - PNEUMONITIS [None]
  - RESPIRATORY FAILURE [None]
